FAERS Safety Report 20990773 (Version 1)
Quarter: 2022Q2

REPORT INFORMATION
  Report Type: Spontaneous
  Country: US (occurrence: US)
  Receive Date: 20220622
  Receipt Date: 20220622
  Transmission Date: 20220721
  Serious: No
  Sender: FDA-Public Use
  Company Number: US-BRISTOL-MYERS SQUIBB COMPANY-2022-053401

PATIENT
  Age: 60 Year
  Sex: Male

DRUGS (11)
  1. REVLIMID [Suspect]
     Active Substance: LENALIDOMIDE
     Indication: Plasma cell myeloma
     Route: 048
     Dates: start: 20210525
  2. ASPIRIN [Concomitant]
     Active Substance: ASPIRIN
     Indication: Product used for unknown indication
     Route: 065
  3. ATORVASTATIN [Concomitant]
     Active Substance: ATORVASTATIN
     Indication: Product used for unknown indication
     Route: 065
  4. BORTEZOMIB INJ [Concomitant]
     Indication: Product used for unknown indication
     Route: 065
  5. OZEMPIC [Concomitant]
     Active Substance: SEMAGLUTIDE
     Indication: Product used for unknown indication
     Dosage: 2/1.5ML
     Route: 065
  6. POTASSIUM GL TAB ER [Concomitant]
     Indication: Product used for unknown indication
     Route: 065
  7. TRESIBA INJ [Concomitant]
     Indication: Product used for unknown indication
     Dosage: 100 UNITS
     Route: 065
  8. VELCADE [Concomitant]
     Active Substance: BORTEZOMIB
     Indication: Product used for unknown indication
     Route: 065
  9. VITAMIN C CHW [Concomitant]
     Indication: Product used for unknown indication
     Route: 065
  10. XIGDUO XR TAB 5 [Concomitant]
     Indication: Product used for unknown indication
     Route: 065
  11. ZOFRAN TAB [Concomitant]
     Indication: Product used for unknown indication
     Route: 065

REACTIONS (1)
  - Fatigue [Unknown]
